FAERS Safety Report 15471831 (Version 1)
Quarter: 2018Q4

REPORT INFORMATION
  Report Type: Report from Study
  Country: None (occurrence: US)
  Receive Date: 20181008
  Receipt Date: 20181008
  Transmission Date: 20190205
  Serious: Yes (Hospitalization)
  Sender: FDA-Public Use
  Company Number: US-ABBVIE-18K-163-2508522-00

PATIENT
  Age: 63 Year
  Sex: Male

DRUGS (1)
  1. HUMIRA [Suspect]
     Active Substance: ADALIMUMAB
     Indication: PRODUCT USED FOR UNKNOWN INDICATION
     Route: 058
     Dates: start: 20180411

REACTIONS (4)
  - Transient ischaemic attack [Recovering/Resolving]
  - Vertigo [Unknown]
  - Liver function test increased [Unknown]
  - Aphasia [Unknown]

NARRATIVE: CASE EVENT DATE: 2018
